FAERS Safety Report 25734966 (Version 4)
Quarter: 2025Q3

REPORT INFORMATION
  Report Type: Spontaneous
  Country: GB (occurrence: GB)
  Receive Date: 20250828
  Receipt Date: 20250929
  Transmission Date: 20251021
  Serious: Yes (Life-Threatening, Hospitalization, Other)
  Sender: JUBILANT
  Company Number: None

PATIENT

DRUGS (6)
  1. PREGABALIN [Suspect]
     Active Substance: PREGABALIN
     Indication: Product used for unknown indication
     Route: 065
  2. QUETIAPINE [Suspect]
     Active Substance: QUETIAPINE
     Indication: Product used for unknown indication
     Route: 065
  3. QUETIAPINE [Suspect]
     Active Substance: QUETIAPINE
     Dosage: 100 MG, ONCE PER DAY
     Route: 065
  4. DULOXETINE [Suspect]
     Active Substance: DULOXETINE
     Indication: Product used for unknown indication
     Route: 065
  5. DULOXETINE [Suspect]
     Active Substance: DULOXETINE
     Route: 065
  6. ALCOHOL [Suspect]
     Active Substance: ALCOHOL
     Indication: Product used for unknown indication
     Route: 065
     Dates: start: 20170418

REACTIONS (4)
  - Overdose [Recovered/Resolved]
  - Respiratory disorder [Recovered/Resolved]
  - Hypotension [Recovered/Resolved]
  - Circulatory collapse [Recovered/Resolved]
